FAERS Safety Report 10077123 (Version 1)
Quarter: 2014Q2

REPORT INFORMATION
  Report Type: Spontaneous
  Country: FR (occurrence: FR)
  Receive Date: 20140414
  Receipt Date: 20140414
  Transmission Date: 20141212
  Serious: Yes (Other)
  Sender: FDA-Public Use
  Company Number: FR-ASTRAZENECA-2014SE23811

PATIENT
  Age: 135 Day
  Sex: Female

DRUGS (1)
  1. EMLA [Suspect]
     Indication: PRODUCT USED FOR UNKNOWN INDICATION
     Dosage: ONE PATCH ON EACH THIGH
     Route: 061
     Dates: start: 20140226, end: 20140226

REACTIONS (1)
  - Burns second degree [Recovering/Resolving]
